FAERS Safety Report 8281760 (Version 4)
Quarter: 2014Q1

REPORT INFORMATION
  Report Type: Spontaneous
  Country: US (occurrence: US)
  Receive Date: 20111209
  Receipt Date: 20140106
  Transmission Date: 20141002
  Serious: Yes (Hospitalization)
  Sender: FDA-Public Use
  Company Number: US-GLAXOSMITHKLINE-B0728967A

PATIENT
  Age: 40 Year
  Sex: Female
  Weight: 79.1 kg

DRUGS (2)
  1. AVANDAMET [Suspect]
     Indication: DIABETES MELLITUS
     Route: 048
     Dates: start: 1999, end: 20091117
  2. AVANDIA [Suspect]
     Indication: DIABETES MELLITUS
     Dosage: 2MG TWICE PER DAY
     Route: 048
     Dates: start: 20091117, end: 201011

REACTIONS (3)
  - Transient ischaemic attack [Unknown]
  - Nuclear magnetic resonance imaging brain abnormal [Unknown]
  - Cardiovascular disorder [Unknown]
